FAERS Safety Report 14824021 (Version 2)
Quarter: 2018Q2

REPORT INFORMATION
  Report Type: Report from Study
  Country: US (occurrence: US)
  Receive Date: 20180428
  Receipt Date: 20180611
  Transmission Date: 20180711
  Serious: No
  Sender: FDA-Public Use
  Company Number: PHEH2018US016523

PATIENT
  Sex: Female

DRUGS (1)
  1. COSENTYX [Suspect]
     Active Substance: SECUKINUMAB
     Indication: ANKYLOSING SPONDYLITIS
     Dosage: 150 MG, QW
     Route: 058

REACTIONS (5)
  - Hypersensitivity [Unknown]
  - Diarrhoea [Unknown]
  - Headache [Unknown]
  - Pruritus [Unknown]
  - Irritable bowel syndrome [Unknown]
